FAERS Safety Report 9337878 (Version 1)
Quarter: 2013Q2

REPORT INFORMATION
  Report Type: Spontaneous
  Country: SE (occurrence: SE)
  Receive Date: 20130608
  Receipt Date: 20130608
  Transmission Date: 20140414
  Serious: Yes (Hospitalization, Other)
  Sender: FDA-Public Use
  Company Number: SE-PFIZER INC-2013169365

PATIENT
  Age: 90 Year
  Sex: Male

DRUGS (2)
  1. DOLCONTIN [Suspect]
     Dosage: UNK
  2. ELIGARD [Concomitant]
     Dosage: 45 MG, UNK

REACTIONS (4)
  - Incorrect dose administered [Unknown]
  - Speech disorder [Unknown]
  - Balance disorder [Unknown]
  - Confusional state [Unknown]
